FAERS Safety Report 4495856-0 (Version None)
Quarter: 2004Q4

REPORT INFORMATION
  Report Type: 
  Country: None (occurrence: None)
  Receive Date: 20041104
  Receipt Date: 20041101
  Transmission Date: 20050328
  Serious: Yes (Hospitalization)
  Sender: FDA-Public Use
  Company Number: 2004-04681

PATIENT
  Age: 66 Year
  Sex: Male
  Weight: 64.4 kg

DRUGS (10)
  1. ANDRODERM [Suspect]
     Indication: BLOOD TESTOSTERONE DECREASED
     Dosage: 1 PATCH, DAILY, TRANSDERMAL
     Route: 062
     Dates: start: 20031101
  2. LEXAPRO [Concomitant]
  3. ^RENAL CAPS: [Concomitant]
  4. PHOSLO [Concomitant]
  5. METOCLOPRAMIDE [Concomitant]
  6. FAMOTIDINE [Concomitant]
  7. NEXIUM [Concomitant]
  8. ^FOLGARD^ [Concomitant]
  9. MEGESTROL ACETATE [Concomitant]
  10. NEOMYCIN [Concomitant]

REACTIONS (6)
  - ABDOMINAL DISTENSION [None]
  - ASTHENIA [None]
  - BLOOD PRESSURE DECREASED [None]
  - DIALYSIS [None]
  - DIZZINESS [None]
  - FALL [None]
